FAERS Safety Report 16535590 (Version 1)
Quarter: 2019Q3

REPORT INFORMATION
  Report Type: Report from Study
  Country: FR (occurrence: FR)
  Receive Date: 20190705
  Receipt Date: 20190705
  Transmission Date: 20191004
  Serious: Yes (Hospitalization, Other)
  Sender: FDA-Public Use
  Company Number: FR-JAZZ-2018-FR-017240

PATIENT

DRUGS (2)
  1. VYXEOS [Suspect]
     Active Substance: CYTARABINE\DAUNORUBICIN
     Indication: ACUTE MYELOID LEUKAEMIA
     Dosage: 100 MG/M2, UNK
     Route: 042
     Dates: start: 20180930
  2. VYXEOS [Suspect]
     Active Substance: CYTARABINE\DAUNORUBICIN
     Dosage: 65 MG/M2, UNK
     Route: 042
     Dates: start: 20181124

REACTIONS (7)
  - Volvulus [Recovered/Resolved]
  - Alopecia [Unknown]
  - Lung disorder [Recovered/Resolved]
  - Urosepsis [Recovered/Resolved]
  - Thrombosis [Recovered/Resolved]
  - Hypothermia [Recovered/Resolved]
  - Prostatitis [Recovered/Resolved]

NARRATIVE: CASE EVENT DATE: 20180119
